FAERS Safety Report 25937543 (Version 1)
Quarter: 2025Q4

REPORT INFORMATION
  Report Type: Spontaneous
  Country: GB (occurrence: GB)
  Receive Date: 20251018
  Receipt Date: 20251018
  Transmission Date: 20260118
  Serious: Yes (Other)
  Sender: ABBVIE
  Company Number: GB-MHRA-EMIS-8873-11d465a5-a0b1-494b-8c15-1d3f97f5adab

PATIENT
  Age: 46 Year
  Sex: Female
  Weight: 46 kg

DRUGS (3)
  1. ATOGEPANT [Suspect]
     Active Substance: ATOGEPANT
     Indication: Product used for unknown indication
     Dosage: ONE TO BE TAKEN DAILY
     Route: 048
  2. RIMEGEPANT [Concomitant]
     Active Substance: RIMEGEPANT
     Indication: Migraine
     Dosage: ONE TO BE TAKEN ON ALTERNATE DAYS?LYOPHILISATES SUGAR FREE
     Route: 048
     Dates: start: 20250725
  3. FERROUS FUMARATE [Concomitant]
     Active Substance: FERROUS FUMARATE
     Indication: Decreased appetite
     Dosage: TAKE 1 A DAY FOR 4 MONTHS
     Dates: start: 20250721

REACTIONS (2)
  - Abnormal loss of weight [Recovering/Resolving]
  - Decreased appetite [Recovered/Resolved]
